FAERS Safety Report 11337442 (Version 1)
Quarter: 2015Q3

REPORT INFORMATION
  Report Type: Spontaneous
  Country: US (occurrence: US)
  Receive Date: 20150803
  Receipt Date: 20150803
  Transmission Date: 20151125
  Serious: Yes (Hospitalization)
  Sender: FDA-Public Use
  Company Number: US-ELI_LILLY_AND_COMPANY-US200704000431

PATIENT
  Age: 41 Year
  Sex: Male
  Weight: 97.51 kg

DRUGS (12)
  1. ZYPREXA [Suspect]
     Active Substance: OLANZAPINE
     Dosage: 5 MG, UNK
     Dates: start: 19970218
  2. HALDOL [Concomitant]
     Active Substance: HALOPERIDOL
     Dates: start: 20060317, end: 20071012
  3. ZYPREXA [Suspect]
     Active Substance: OLANZAPINE
     Dosage: 10 MG, UNK
     Dates: start: 19970218, end: 20040917
  4. GEODON [Concomitant]
     Active Substance: ZIPRASIDONE HYDROCHLORIDE\ZIPRASIDONE MESYLATE
     Dates: start: 20060701, end: 20060724
  5. ZYPREXA [Suspect]
     Active Substance: OLANZAPINE
     Dosage: 20 MG, UNK
     Dates: start: 1996
  6. BUPROPION. [Concomitant]
     Active Substance: BUPROPION
     Dates: start: 20050212, end: 20050321
  7. ZOLOFT [Concomitant]
     Active Substance: SERTRALINE HYDROCHLORIDE
     Dates: start: 20030317
  8. DEPAKOTE [Concomitant]
     Active Substance: DIVALPROEX SODIUM
     Dates: start: 19950126, end: 20071012
  9. SEROQUEL [Concomitant]
     Active Substance: QUETIAPINE FUMARATE
     Dates: start: 20040917, end: 20060429
  10. RISPERDAL [Concomitant]
     Active Substance: RISPERIDONE
     Dates: start: 20060813, end: 20071012
  11. CLOZARIL [Concomitant]
     Active Substance: CLOZAPINE
     Dates: start: 19941228, end: 20070425
  12. HYDROCHLOROTHIAZIDE. [Concomitant]
     Active Substance: HYDROCHLOROTHIAZIDE
     Dates: start: 19950422

REACTIONS (7)
  - Diabetes mellitus [Not Recovered/Not Resolved]
  - Paranoia [Unknown]
  - Hypertension [Unknown]
  - Blood glucose increased [Unknown]
  - Polyuria [Unknown]
  - Weight increased [Not Recovered/Not Resolved]
  - Diabetes mellitus [Unknown]

NARRATIVE: CASE EVENT DATE: 1997
